APPROVED DRUG PRODUCT: ALYQ
Active Ingredient: TADALAFIL
Strength: 20MG
Dosage Form/Route: TABLET;ORAL
Application: A216932 | Product #001 | TE Code: AB2
Applicant: TEVA PHARMACEUTICALS INC
Approved: Oct 12, 2022 | RLD: No | RS: No | Type: RX